FAERS Safety Report 14236599 (Version 1)
Quarter: 2017Q4

REPORT INFORMATION
  Report Type: Spontaneous
  Country: US (occurrence: US)
  Receive Date: 20171129
  Receipt Date: 20171129
  Transmission Date: 20180321
  Serious: No
  Sender: FDA-Public Use
  Company Number: US-TEIKOKU PHARMA USA-TPU2017-00723

PATIENT
  Age: 60 Year
  Sex: Female
  Weight: 58.11 kg

DRUGS (4)
  1. VIVELLE [Concomitant]
     Active Substance: ESTRADIOL
  2. LIDOCAINE PATCH [Suspect]
     Active Substance: LIDOCAINE
     Indication: MYALGIA
     Dosage: APPLIED TO RIGHT ARM AND RIGHT SHOULDER
     Route: 061
     Dates: start: 20171115
  3. PROGESTERONE. [Concomitant]
     Active Substance: PROGESTERONE
  4. TESTOSTERONE. [Concomitant]
     Active Substance: TESTOSTERONE
     Dosage: APPLY TO WRIST DAILY

REACTIONS (1)
  - Fatigue [Recovered/Resolved]

NARRATIVE: CASE EVENT DATE: 20171115
